FAERS Safety Report 25062952 (Version 1)
Quarter: 2025Q1

REPORT INFORMATION
  Report Type: Spontaneous
  Country: ES (occurrence: ES)
  Receive Date: 20250311
  Receipt Date: 20250311
  Transmission Date: 20250408
  Serious: Yes (Hospitalization)
  Sender: RANBAXY
  Company Number: ES-AEMPS-1617025

PATIENT
  Age: 27 Year
  Sex: Female

DRUGS (3)
  1. ACETAMINOPHEN [Suspect]
     Active Substance: ACETAMINOPHEN
     Indication: Cytomegalovirus mononucleosis
     Dosage: 1 GR, 3 TIMES DAILY
     Route: 048
     Dates: start: 20240308, end: 20240404
  2. METAMIZOL [Suspect]
     Active Substance: METAMIZOLE SODIUM
     Indication: Cytomegalovirus mononucleosis
     Dosage: 575 MG, 3 TIMES DAILY
     Route: 048
     Dates: start: 20240308, end: 20240404
  3. DEXKETOPROFEN [Suspect]
     Active Substance: DEXKETOPROFEN
     Indication: Cytomegalovirus mononucleosis
     Route: 048
     Dates: start: 20240313, end: 20240318

REACTIONS (3)
  - Drug reaction with eosinophilia and systemic symptoms [Recovered/Resolved]
  - Mixed liver injury [Recovered/Resolved]
  - Respiratory failure [Recovered/Resolved]

NARRATIVE: CASE EVENT DATE: 20240328
